FAERS Safety Report 18455373 (Version 2)
Quarter: 2021Q2

REPORT INFORMATION
  Report Type: Spontaneous
  Country: US (occurrence: US)
  Receive Date: 20201103
  Receipt Date: 20210604
  Transmission Date: 20210717
  Serious: No
  Sender: FDA-Public Use
  Company Number: US-SA-2020SA308524

PATIENT
  Sex: Male

DRUGS (1)
  1. PRALUENT [Suspect]
     Active Substance: ALIROCUMAB
     Indication: HYPERCHOLESTEROLAEMIA
     Dosage: 75 MG, Q2W
     Route: 058
     Dates: start: 20200929

REACTIONS (2)
  - Pollakiuria [Unknown]
  - Sleep disorder [Unknown]

NARRATIVE: CASE EVENT DATE: 2020
